FAERS Safety Report 8203380 (Version 3)
Quarter: 2012Q4

REPORT INFORMATION
  Report Type: 
  Country: US (occurrence: US)
  Receive Date: 20111027
  Receipt Date: 20121018
  Transmission Date: 20130627
  Serious: Yes (Hospitalization, Other)
  Sender: FDA-Public Use
  Company Number: US-MILLENNIUM PHARMACEUTICALS, INC.-2011-05001

PATIENT
  Age: 68 Year
  Sex: Male
  Weight: 65.31 kg

DRUGS (1)
  1. VELCADE [Suspect]
     Indication: MULTIPLE MYELOMA
     Dosage: 1.3 mg/m2, Cyclic
     Route: 042

REACTIONS (4)
  - Pain [Unknown]
  - Plasma cell myeloma [Unknown]
  - Asthenia [Unknown]
  - Anaemia [Unknown]
